FAERS Safety Report 7085735-7 (Version None)
Quarter: 2010Q4

REPORT INFORMATION
  Report Type: 
  Country: None (occurrence: None)
  Receive Date: 20101105
  Receipt Date: 20101025
  Transmission Date: 20110411
  Serious: Yes (Hospitalization, Other)
  Sender: FDA-Public Use
  Company Number: JP-GENENTECH-307728

PATIENT
  Sex: Female
  Weight: 58 kg

DRUGS (12)
  1. XOLAIR [Suspect]
     Indication: ASTHMA
     Dosage: 375 MG, Q2W
     Route: 058
     Dates: start: 20100430
  2. XOLAIR [Suspect]
     Dosage: 375 MG, Q2W
     Dates: start: 20100604
  3. XOLAIR [Suspect]
     Dosage: 375 MG, 2/MONTH
     Dates: start: 20100707
  4. XOLAIR [Suspect]
     Dosage: 375 MG, UNK
     Route: 058
     Dates: start: 20100707
  5. XOLAIR [Suspect]
     Dosage: 375 MG, Q2W
     Route: 058
     Dates: start: 20100806
  6. XOLAIR [Suspect]
     Dosage: UNK
     Dates: start: 20100818
  7. ZADITEN [Concomitant]
     Indication: PRODUCT USED FOR UNKNOWN INDICATION
  8. ADVAIR DISKUS 100/50 [Concomitant]
     Indication: PRODUCT USED FOR UNKNOWN INDICATION
     Dosage: UNK
     Dates: start: 20091101
  9. SYMBICORT [Concomitant]
     Indication: PRODUCT USED FOR UNKNOWN INDICATION
     Dosage: UNK
     Dates: start: 20100604
  10. KIPRES [Concomitant]
     Indication: PRODUCT USED FOR UNKNOWN INDICATION
     Dosage: UNK
     Dates: start: 20091101
  11. PREDNISOLONE [Concomitant]
     Indication: PRODUCT USED FOR UNKNOWN INDICATION
     Dosage: UNK
     Dates: start: 20091123
  12. SULTANOL [Concomitant]
     Indication: PRODUCT USED FOR UNKNOWN INDICATION
     Dosage: UNK
     Dates: start: 20091101

REACTIONS (1)
  - ASTHMA [None]
